FAERS Safety Report 4383024-2 (Version None)
Quarter: 2004Q2

REPORT INFORMATION
  Report Type: 
  Country: None (occurrence: None)
  Receive Date: 20040526
  Receipt Date: 20040427
  Transmission Date: 20050107
  Serious: Yes (Death, Hospitalization)
  Sender: FDA-Public Use
  Company Number: US_0403101897

PATIENT
  Age: 50 Year
  Sex: Female

DRUGS (44)
  1. ZYPREXA [Suspect]
     Indication: SCHIZOAFFECTIVE DISORDER
     Dosage: 30 MG DAY
     Dates: start: 20000101
  2. MELLARIL [Concomitant]
  3. ADVAIR HFA [Concomitant]
  4. CLONEZEPAM [Concomitant]
  5. PHENYTOIN [Concomitant]
  6. AMBIEN [Concomitant]
  7. PROTONIX [Concomitant]
  8. COMBIVENT [Concomitant]
  9. METHOCARBAMOL [Concomitant]
  10. HYDROCODONE W/APAP [Concomitant]
  11. FAMOTIDINE [Concomitant]
  12. ZANAFLEX [Concomitant]
  13. DIAZEPAM [Concomitant]
  14. BELLADONNA ALKALOIDS [Concomitant]
  15. CARISOPRODOL [Concomitant]
  16. ATROPINE W/DIPHENOXYLATE [Concomitant]
  17. SULFAMETHOXAZOLE + TRIMETHOPRIM [Concomitant]
  18. SKELAXIN [Concomitant]
  19. AMOXICILLIN [Concomitant]
  20. PROPOXYPHENE [Concomitant]
  21. TETRACYCLINE [Concomitant]
  22. TYLENOL W/ CODEINE NO. 3 [Concomitant]
  23. METOCLOPRAMIDE [Concomitant]
  24. NEURONTIN [Concomitant]
  25. TEMAZEPAM [Concomitant]
  26. ZITHROMAX [Concomitant]
  27. ALBUTEROL [Concomitant]
  28. TEQUIN (AZITHROMYCIN) [Concomitant]
  29. WELLBUTRIN SR [Concomitant]
  30. CHLORPROMAZINE [Concomitant]
  31. NICOTROL (NICOTINE) [Concomitant]
  32. ULTRAM [Concomitant]
  33. LORAZEPAM [Concomitant]
  34. PENICILLIN-VK [Concomitant]
  35. TRAZADONE (TRAZODONE) [Concomitant]
  36. SEROQUEL [Concomitant]
  37. KETOROLAC TROMETHAMINE [Concomitant]
  38. DEPAKOTE [Concomitant]
  39. DIFLUCAN [Concomitant]
  40. PREMPHASE 14/14 [Concomitant]
  41. HYOSCYAMINE [Concomitant]
  42. DICYCLOMINE (DICYCLOVERINE) [Concomitant]
  43. TIZANIDINE HCL [Concomitant]
  44. VIOXX [Concomitant]

REACTIONS (9)
  - ABNORMAL BEHAVIOUR [None]
  - AGGRESSION [None]
  - ANGER [None]
  - CONVULSION [None]
  - DEPRESSION SUICIDAL [None]
  - GUN SHOT WOUND [None]
  - PERSONALITY CHANGE [None]
  - PRESCRIBED OVERDOSE [None]
  - VISUAL ACUITY REDUCED [None]
